FAERS Safety Report 6095150-0 (Version None)
Quarter: 2009Q1

REPORT INFORMATION
  Report Type: 
  Country: None (occurrence: None)
  Receive Date: 20090227
  Receipt Date: 20080125
  Transmission Date: 20090719
  Serious: Yes (Other)
  Sender: FDA-Public Use
  Company Number: A0706424A

PATIENT
  Sex: Female

DRUGS (2)
  1. LAMICTAL [Suspect]
     Indication: BIPOLAR I DISORDER
     Dosage: 300MG PER DAY
     Route: 048
  2. SEROQUEL [Concomitant]
     Indication: BIPOLAR I DISORDER

REACTIONS (1)
  - HALLUCINATION, VISUAL [None]
